FAERS Safety Report 24186167 (Version 2)
Quarter: 2024Q3

REPORT INFORMATION
  Report Type: Report from Study
  Country: US (occurrence: US)
  Receive Date: 20240808
  Receipt Date: 20240816
  Transmission Date: 20241016
  Serious: Yes (Hospitalization, Other)
  Sender: ABBVIE
  Company Number: US-ABBVIE-5867658

PATIENT
  Sex: Male
  Weight: 69.853 kg

DRUGS (9)
  1. IMBRUVICA [Suspect]
     Active Substance: IBRUTINIB
     Indication: B-cell small lymphocytic lymphoma
     Dosage: 420 MILLIGRAM
     Route: 048
     Dates: start: 202306, end: 202310
  2. IMBRUVICA [Suspect]
     Active Substance: IBRUTINIB
     Indication: B-cell small lymphocytic lymphoma
     Route: 048
     Dates: start: 2024
  3. IMBRUVICA [Suspect]
     Active Substance: IBRUTINIB
     Indication: B-cell small lymphocytic lymphoma
     Route: 048
     Dates: start: 202311, end: 20231115
  4. LOSARTAN [Concomitant]
     Active Substance: LOSARTAN\LOSARTAN POTASSIUM
     Indication: Blood pressure abnormal
  5. IRON [Concomitant]
     Active Substance: IRON
     Indication: Mineral supplementation
  6. LACTASE [Concomitant]
     Active Substance: LACTASE
     Indication: Enzyme supplementation
  7. CANNABIDIOL\HERBALS [Concomitant]
     Active Substance: CANNABIDIOL\HERBALS
     Indication: Pain
  8. IMODIUM [Concomitant]
     Active Substance: LOPERAMIDE HYDROCHLORIDE
     Indication: Diarrhoea
  9. VITAMIN D3 [Concomitant]
     Active Substance: CHOLECALCIFEROL
     Indication: Vitamin supplementation

REACTIONS (14)
  - Precancerous condition [Recovered/Resolved]
  - Pain [Recovering/Resolving]
  - Fatigue [Recovered/Resolved]
  - Back pain [Recovered/Resolved]
  - Fall [Recovered/Resolved]
  - Discomfort [Recovering/Resolving]
  - Diarrhoea [Recovered/Resolved]
  - Osteoarthritis [Recovered/Resolved]
  - Joint injury [Recovered/Resolved]
  - Diarrhoea [Recovered/Resolved]
  - Post procedural haemorrhage [Recovered/Resolved]
  - Back pain [Recovering/Resolving]
  - Impaired healing [Recovered/Resolved]
  - Surgery [Unknown]

NARRATIVE: CASE EVENT DATE: 20230101
